FAERS Safety Report 6832670-2 (Version None)
Quarter: 2010Q3

REPORT INFORMATION
  Report Type: 
  Country: None (occurrence: None)
  Receive Date: 20100707
  Receipt Date: 20100622
  Transmission Date: 20110219
  Serious: Yes (Other)
  Sender: FDA-Public Use
  Company Number: JP-SOLVAY-00310004029

PATIENT
  Age: 78 Year
  Sex: Female

DRUGS (2)
  1. LUVOX [Suspect]
     Indication: PRODUCT USED FOR UNKNOWN INDICATION
     Dosage: ORAL
     Route: 048
  2. DESYREL [Concomitant]

REACTIONS (2)
  - DYSKINESIA [None]
  - PARKINSONISM [None]
